FAERS Safety Report 10714729 (Version 2)
Quarter: 2015Q1

REPORT INFORMATION
  Report Type: Report from Study
  Country: CA (occurrence: CA)
  Receive Date: 20150115
  Receipt Date: 20150116
  Transmission Date: 20150721
  Serious: Yes (Other)
  Sender: FDA-Public Use
  Company Number: CA-ASTRAZENECA-2015SE02724

PATIENT
  Age: 26911 Day
  Sex: Male

DRUGS (5)
  1. INDERAL LA [Concomitant]
     Active Substance: PROPRANOLOL HYDROCHLORIDE
  2. HCTZ [Concomitant]
     Active Substance: HYDROCHLOROTHIAZIDE
  3. ASA [Concomitant]
     Active Substance: ASPIRIN
  4. ZOLADEX LA [Suspect]
     Active Substance: GOSERELIN ACETATE
     Indication: PROSTATE CANCER
     Route: 058
     Dates: start: 20141022
  5. BICALUTAMIDE. [Concomitant]
     Active Substance: BICALUTAMIDE

REACTIONS (6)
  - Bone cancer [Not Recovered/Not Resolved]
  - Malignant neoplasm progression [Not Recovered/Not Resolved]
  - Chills [Recovered/Resolved]
  - Swelling [Not Recovered/Not Resolved]
  - Application site pain [Not Recovered/Not Resolved]
  - Abdominal tenderness [Not Recovered/Not Resolved]

NARRATIVE: CASE EVENT DATE: 20141022
